FAERS Safety Report 8431059-2 (Version None)
Quarter: 2012Q2

REPORT INFORMATION
  Report Type: 
  Country: None (occurrence: None)
  Receive Date: 20120612
  Receipt Date: 20120604
  Transmission Date: 20120825
  Serious: Yes (Death, Life-Threatening, Hospitalization)
  Sender: FDA-Public Use
  Company Number: US-TEVA-339182USA

PATIENT
  Sex: Female
  Weight: 54 kg

DRUGS (16)
  1. TREANDA [Suspect]
     Indication: ACUTE MYELOID LEUKAEMIA
     Route: 042
     Dates: start: 20120507
  2. IDARUBICIN HCL [Suspect]
     Indication: ACUTE MYELOID LEUKAEMIA
     Route: 042
     Dates: start: 20120507
  3. LEVOTHYROXINE SODIUM [Concomitant]
     Dosage: 200 MICROGRAM;
  4. MULTI-VITAMIN [Concomitant]
  5. CIPROFLOXACIN [Concomitant]
     Dosage: 500 MILLIGRAM;
  6. OMEPRAZOLE [Concomitant]
     Dosage: 20 MILLIGRAM;
  7. FLUCONAZOLE [Concomitant]
     Dosage: 200 MILLIGRAM;
  8. COPPER [Concomitant]
     Dosage: 4 MILLIGRAM;
  9. CITALOPRAM [Concomitant]
     Dosage: 20 MILLIGRAM;
  10. POTASSIUM CHLORIDE [Concomitant]
     Dosage: 40 MILLIEQUIVALENTS;
  11. GABAPENTIN [Concomitant]
     Dosage: 300 MILLIGRAM;
  12. MELATONIN [Concomitant]
     Dosage: QHS
  13. COLECALCIFEROL [Concomitant]
  14. PREDNISONE [Concomitant]
     Dosage: 10 MILLIGRAM;
  15. MESALAMINE [Concomitant]
     Dosage: 1200 MILLIGRAM;
  16. ALLOPURINOL [Concomitant]
     Dosage: 300 MILLIGRAM;

REACTIONS (3)
  - RENAL FAILURE ACUTE [None]
  - THROMBOSIS [None]
  - BACTERAEMIA [None]
